FAERS Safety Report 5581057-1 (Version None)
Quarter: 2007Q4

REPORT INFORMATION
  Report Type: 
  Country: None (occurrence: None)
  Receive Date: 20071227
  Receipt Date: 20071214
  Transmission Date: 20080405
  Serious: Yes (Life-Threatening)
  Sender: FDA-Public Use
  Company Number: E2090-00364-SPO-JP

PATIENT
  Age: 51 Year
  Sex: Male

DRUGS (23)
  1. ZONISAMIDE [Suspect]
     Indication: LOSS OF CONSCIOUSNESS
     Dosage: 200 MG,ORAL
     Route: 048
     Dates: start: 20031213, end: 20040110
  2. DEPAKENE [Suspect]
     Dosage: 600 MG, ORAL
     Route: 048
     Dates: start: 20040110, end: 20040320
  3. MEIACT(CEFDITOREN PIVOXIL) [Suspect]
     Dosage: ORAL
     Route: 048
     Dates: start: 20040121
  4. PL (NON-PYRINE COLD PREPARATION) [Concomitant]
  5. MEDICON(DEXTROMETHORPHAN HYDROBROMIDE) [Concomitant]
  6. LOXONIN(LOXOPROFEN SODIUM) [Concomitant]
  7. CELESTAMINE(CELESTAMINE) [Concomitant]
  8. MUCOSTA(REBAMIPIDE) [Concomitant]
  9. BROCIN(WILD CHERRY BARK) [Concomitant]
  10. CODEINE PHOSPHATE(CODEINE PHOSPHATE) [Concomitant]
  11. VOLTAREN [Concomitant]
  12. CYTOTEC [Concomitant]
  13. PREDNISOLONE [Concomitant]
  14. FAMOTIDINE [Concomitant]
  15. MARZULENE S(MARZULENE S) [Concomitant]
  16. PROMAC(POLAPREZINC) [Concomitant]
  17. LANSOPRAZOLE [Concomitant]
  18. POLARAMINE [Concomitant]
  19. EBASTEL(EBASTINE) [Concomitant]
  20. TROCHES (COMP) [Concomitant]
  21. SOL-MELCORT(METHYLPREDNISOLONE SODIUM SUCCINATE) [Concomitant]
  22. PABRON(PABRON) [Concomitant]
  23. MUCOSOLVAN (AMBROXOL HYDROCHLORIDE) [Concomitant]

REACTIONS (5)
  - EOSINOPHILIC PNEUMONIA [None]
  - HEADACHE [None]
  - LYMPHOCYTE STIMULATION TEST POSITIVE [None]
  - NASOPHARYNGITIS [None]
  - RASH GENERALISED [None]
